FAERS Safety Report 5122890-X (Version None)
Quarter: 2006Q4

REPORT INFORMATION
  Report Type: 
  Country: None (occurrence: None)
  Receive Date: 20061005
  Receipt Date: 20060922
  Transmission Date: 20070319
  Serious: Yes (Other)
  Sender: FDA-Public Use
  Company Number: 2006116306

PATIENT
  Age: 50 Year
  Sex: Female
  Weight: 66.2252 kg

DRUGS (2)
  1. CHANTIX                    (VARENICLINE) [Suspect]
     Dosage: 0.5 MG (0.5 MG, 1 IN 1 D)
     Dates: start: 20060917, end: 20060917
  2. COZAAR [Concomitant]

REACTIONS (17)
  - CHEST DISCOMFORT [None]
  - DIZZINESS [None]
  - DRY MOUTH [None]
  - DYSARTHRIA [None]
  - DYSPHAGIA [None]
  - FACIAL PALSY [None]
  - FEELING ABNORMAL [None]
  - GAIT DISTURBANCE [None]
  - HOT FLUSH [None]
  - INSOMNIA [None]
  - NAUSEA [None]
  - ORAL INTAKE REDUCED [None]
  - POLLAKIURIA [None]
  - REFUSAL OF TREATMENT BY PATIENT [None]
  - TREMOR [None]
  - URINE OUTPUT INCREASED [None]
  - WHITE BLOOD CELL COUNT INCREASED [None]
